FAERS Safety Report 6200787 (Version 2)
Quarter: 2012Q4

REPORT INFORMATION
  Report Type: 
  Country: US (occurrence: US)
  Receive Date: 20061221
  Receipt Date: 20121023
  Transmission Date: 20130627
  Serious: No
  Sender: FDA-Public Use
  Company Number: US-AMGEN-US150639

PATIENT
  Age: 45 Year
  Sex: Male

DRUGS (2)
  1. ENBREL [Suspect]
     Indication: PSORIATIC ARTHROPATHY
     Dosage: 50 mg, qwk
     Route: 065
     Dates: start: 200412
  2. ENBREL [Suspect]
     Indication: PSORIASIS
     Dosage: 25 mg, 2 times/wk
     Dates: start: 20100101, end: 2010

REACTIONS (1)
  - Psoriatic arthropathy [Not Recovered/Not Resolved]
